FAERS Safety Report 8637839 (Version 4)
Quarter: 2012Q4

REPORT INFORMATION
  Report Type: Report from Study
  Country: CA (occurrence: CA)
  Receive Date: 20120627
  Receipt Date: 20120904
  Transmission Date: 20130627
  Serious: Yes (Death, Hospitalization)
  Sender: FDA-Public Use
  Company Number: CA-BRISTOL-MYERS SQUIBB COMPANY-16692121

PATIENT
  Age: 73 Year
  Sex: Male
  Weight: 71 kg

DRUGS (2)
  1. IPILIMUMAB [Suspect]
     Indication: MALIGNANT MELANOMA
     Dosage: course-2 last dose 06Jun12-203mg, 18Jul12-225mg
     Route: 042
     Dates: start: 20120516, end: 20120606
  2. MORPHINE SULFATE [Suspect]

REACTIONS (4)
  - Malignant neoplasm progression [Fatal]
  - Bacteraemia [Recovered/Resolved]
  - Colitis [Recovered/Resolved]
  - Cerebrovascular accident [Unknown]
